FAERS Safety Report 14407687 (Version 4)
Quarter: 2018Q2

REPORT INFORMATION
  Report Type: Report from Study
  Country: US (occurrence: US)
  Receive Date: 20180118
  Receipt Date: 20180413
  Transmission Date: 20180711
  Serious: Yes (Hospitalization)
  Sender: FDA-Public Use
  Company Number: US-ACTELION-A-US2017-154621

PATIENT
  Age: 55 Year
  Sex: Female
  Weight: 77.55 kg

DRUGS (5)
  1. XARELTO [Concomitant]
     Active Substance: RIVAROXABAN
  2. OPSUMIT [Suspect]
     Active Substance: MACITENTAN
     Indication: PULMONARY ARTERIAL HYPERTENSION
     Dosage: 10 MG, QD
     Route: 048
  3. ADEMPAS [Suspect]
     Active Substance: RIOCIGUAT
     Dosage: 2.5 MG, UNK
     Route: 048
  4. ADEMPAS [Suspect]
     Active Substance: RIOCIGUAT
     Dosage: 2 MG, TID
     Route: 048
  5. ADEMPAS [Suspect]
     Active Substance: RIOCIGUAT
     Indication: PRODUCT USED FOR UNKNOWN INDICATION
     Dosage: UNK
     Route: 065

REACTIONS (19)
  - Throat irritation [Unknown]
  - Migraine [Recovered/Resolved]
  - Nausea [Unknown]
  - Cystitis [Unknown]
  - Dyspnoea [Unknown]
  - Weight increased [Unknown]
  - Headache [Unknown]
  - Diarrhoea [Unknown]
  - Dyspepsia [Unknown]
  - Biopsy lung [Unknown]
  - Feeling abnormal [Unknown]
  - Chest tube insertion [Unknown]
  - Cough [Recovered/Resolved]
  - Pain in extremity [Unknown]
  - Eructation [Unknown]
  - Thoracic operation [Unknown]
  - Rash [Unknown]
  - Drug dose omission [Unknown]
  - Dyspnoea exertional [Unknown]

NARRATIVE: CASE EVENT DATE: 20171205
